FAERS Safety Report 5910651-0 (Version None)
Quarter: 2008Q4

REPORT INFORMATION
  Report Type: 
  Country: None (occurrence: None)
  Receive Date: 20081007
  Receipt Date: 20081002
  Transmission Date: 20090506
  Serious: Yes (Hospitalization)
  Sender: FDA-Public Use
  Company Number: CH-ASTRAZENECA-2008PK02174

PATIENT
  Age: 54 Year
  Sex: Female
  Weight: 83 kg

DRUGS (14)
  1. SEROQUEL [Suspect]
     Dosage: 50-200 MG DAILY
     Route: 048
     Dates: start: 20080721, end: 20080724
  2. SEROQUEL [Suspect]
     Route: 048
     Dates: start: 20080725, end: 20080728
  3. SEROQUEL [Suspect]
     Route: 048
     Dates: start: 20080729, end: 20080729
  4. SEROQUEL [Suspect]
     Route: 048
     Dates: start: 20080730, end: 20080730
  5. TRITTICO [Suspect]
     Dosage: 50-200 MG DAILY
     Route: 048
     Dates: start: 20080710, end: 20080720
  6. TRITTICO [Suspect]
     Route: 048
     Dates: start: 20080721, end: 20080825
  7. TRITTICO [Suspect]
     Route: 048
     Dates: start: 20080726
  8. XANAX [Suspect]
     Route: 048
     Dates: start: 20080714
  9. TENORMIN [Concomitant]
     Dates: start: 20080718
  10. CIPRALEX [Concomitant]
     Route: 048
     Dates: start: 20080703, end: 20080713
  11. CIPRALEX [Concomitant]
     Route: 048
     Dates: start: 20080714
  12. ATENOLOL [Concomitant]
     Route: 048
     Dates: end: 20080717
  13. RISPERDAL [Concomitant]
     Dosage: 0.5-3 MG DAILY
     Route: 048
     Dates: start: 20080703, end: 20080723
  14. AKINETON [Concomitant]
     Route: 048
     Dates: start: 20080719

REACTIONS (1)
  - THROMBOSIS [None]
